FAERS Safety Report 14694267 (Version 1)
Quarter: 2018Q1

REPORT INFORMATION
  Report Type: Spontaneous
  Country: JP (occurrence: JP)
  Receive Date: 20180329
  Receipt Date: 20180329
  Transmission Date: 20180509
  Serious: Yes (Other)
  Sender: FDA-Public Use
  Company Number: JP-BAYER-2018-057277

PATIENT
  Age: 37 Year
  Sex: Female

DRUGS (3)
  1. IMMUNOGLOBULIN NOS [Concomitant]
     Active Substance: IMMUNE GLOBULIN NOS
  2. BAYASPIRIN 100 MG [Suspect]
     Active Substance: ASPIRIN
     Indication: PROTEIN S DEFICIENCY
  3. HEPARIN [Concomitant]
     Active Substance: HEPARIN SODIUM
     Indication: PROTEIN S DEFICIENCY

REACTIONS (4)
  - Product use in unapproved indication [None]
  - Off label use [None]
  - Exposure during pregnancy [None]
  - Oligohydramnios [None]
